FAERS Safety Report 24240664 (Version 1)
Quarter: 2024Q3

REPORT INFORMATION
  Report Type: Report from Study
  Country: SA (occurrence: SA)
  Receive Date: 20240823
  Receipt Date: 20240823
  Transmission Date: 20241016
  Serious: Yes (Death, Hospitalization)
  Sender: ALEXION PHARMACEUTICALS
  Company Number: SA-AstraZeneca-CH-00682994A

PATIENT
  Age: 1 Year
  Sex: Male

DRUGS (1)
  1. STRENSIQ [Suspect]
     Active Substance: ASFOTASE ALFA
     Indication: Hypophosphatasia
     Dosage: UNK
     Route: 058

REACTIONS (1)
  - Influenza [Fatal]
